FAERS Safety Report 13827896 (Version 4)
Quarter: 2018Q1

REPORT INFORMATION
  Report Type: Report from Study
  Country: DE (occurrence: DE)
  Receive Date: 20170803
  Receipt Date: 20180116
  Transmission Date: 20180508
  Serious: Yes (Hospitalization)
  Sender: FDA-Public Use
  Company Number: DE-BIOGEN-2017BI00438436

PATIENT
  Age: 39 Year
  Sex: Female
  Weight: 62 kg

DRUGS (9)
  1. AIDA [Concomitant]
     Active Substance: DROSPIRENONE\ETHINYL ESTRADIOL
     Indication: CHEMICAL CONTRACEPTION
     Dosage: 0.020/3MG
     Route: 048
     Dates: start: 2005
  2. TYSABRI [Suspect]
     Active Substance: NATALIZUMAB
     Indication: RELAPSING-REMITTING MULTIPLE SCLEROSIS
     Dosage: INFUSED OVER ONE HOUR
     Route: 042
     Dates: start: 20140721
  3. DEKRISTOL [Concomitant]
     Active Substance: CHOLECALCIFEROL
     Indication: PROPHYLAXIS
     Route: 048
     Dates: start: 20121217
  4. VITAMIN B12 [Concomitant]
     Active Substance: CYANOCOBALAMIN
     Indication: NUTRITIONAL SUPPLEMENTATION
     Route: 058
     Dates: start: 20130806, end: 20170102
  5. VITAMIN D [Concomitant]
     Active Substance: CHOLECALCIFEROL
     Indication: NUTRITIONAL SUPPLEMENTATION
     Route: 065
     Dates: start: 20121217
  6. VESIKUR [Concomitant]
     Active Substance: SOLIFENACIN SUCCINATE
     Indication: MULTIPLE SCLEROSIS
     Route: 065
  7. VITAMIN B12 [Concomitant]
     Active Substance: CYANOCOBALAMIN
     Route: 048
     Dates: start: 20170103
  8. CLEXANE [Concomitant]
     Active Substance: ENOXAPARIN SODIUM
     Indication: PRODUCT USED FOR UNKNOWN INDICATION
     Route: 058
     Dates: start: 20170719, end: 20170719
  9. FAMPYRA [Suspect]
     Active Substance: DALFAMPRIDINE
     Indication: GAIT DISTURBANCE
     Route: 048
     Dates: start: 20150222

REACTIONS (1)
  - Cervical dysplasia [Recovered/Resolved]

NARRATIVE: CASE EVENT DATE: 20170315
